FAERS Safety Report 6373391-2 (Version None)
Quarter: 2009Q3

REPORT INFORMATION
  Report Type: 
  Country: None (occurrence: None)
  Receive Date: 20090924
  Receipt Date: 20090319
  Transmission Date: 20100115
  Serious: No
  Sender: FDA-Public Use
  Company Number: US-ASTRAZENECA-2009UW07138

PATIENT
  Age: 44 Year
  Sex: Female
  Weight: 48.1 kg

DRUGS (1)
  1. SEROQUEL [Suspect]
     Indication: SLEEP DISORDER
     Dosage: 100 TO 200 MG AS NEEDED
     Route: 048
     Dates: start: 20090201

REACTIONS (1)
  - FEELING ABNORMAL [None]
